FAERS Safety Report 4456894-7 (Version None)
Quarter: 2004Q3

REPORT INFORMATION
  Report Type: 
  Country: None (occurrence: None)
  Receive Date: 20040921
  Receipt Date: 20040810
  Transmission Date: 20050211
  Serious: Yes (Death)
  Sender: FDA-Public Use
  Company Number: 2004-BP-04611AU

PATIENT
  Age: 68 Year
  Sex: Male

DRUGS (4)
  1. SPIRIVA [Suspect]
     Indication: CHRONIC OBSTRUCTIVE AIRWAYS DISEASE
     Dosage: 18 MCG (18 MCG, 18 MCG INHALED ONCE DAILY) IH
     Route: 055
     Dates: start: 20030603
  2. ALBUTEROL [Concomitant]
  3. AMOXYCILLIN (AMOXICILLIN) (NR) [Concomitant]
  4. SLO-PHYLLIN (AMINOPHYLLINE) (NR) [Concomitant]

REACTIONS (1)
  - SUDDEN DEATH [None]
